FAERS Safety Report 15883328 (Version 1)
Quarter: 2019Q1

REPORT INFORMATION
  Report Type: Spontaneous
  Country: DE (occurrence: DE)
  Receive Date: 20190129
  Receipt Date: 20190129
  Transmission Date: 20190417
  Serious: Yes (Hospitalization)
  Sender: FDA-Public Use
  Company Number: DE-ACCORD-103724

PATIENT
  Age: 63 Year
  Sex: Male
  Weight: 79 kg

DRUGS (10)
  1. SULFAMETHOXAZOLE/TRIMETHOPRIM [Concomitant]
     Dosage: 800, 160 MG, ACCORDING TO THE SCHEME, TABLETS
     Route: 048
  2. CALCIUM CARBONATE/COLECALCIFEROL [Suspect]
     Active Substance: CALCIUM CARBONATE\CHOLECALCIFEROL
     Indication: PRODUCT USED FOR UNKNOWN INDICATION
     Dosage: 400, 1.25 I.U./G, 1-0-1-0, CHEWABLE TABLETS
     Route: 048
  3. POMALIDOMIDE [Suspect]
     Active Substance: POMALIDOMIDE
     Indication: PRODUCT USED FOR UNKNOWN INDICATION
     Dosage: 4 MG, ACCORDING TO THE SCHEME, TABLETS
     Route: 048
  4. PANTOPRAZOLE [Concomitant]
     Active Substance: PANTOPRAZOLE
     Dosage: 40 MG, 1-0-0-0,  TABLETS
     Route: 048
  5. PAMIDRONATE DISODIUM/PAMIDRONIC ACID [Concomitant]
     Dosage: 90 MG / MONTH, 1-0-0-0, INJECTION / INFUSION SOLUTION
     Route: 042
  6. DEXAMETHASONE. [Concomitant]
     Active Substance: DEXAMETHASONE
     Dosage: 40 MG / WEEK, ACCORDING TO THE SCHEME, TABLETS
     Route: 048
  7. ACETYLSALICYLIC ACID [Concomitant]
     Active Substance: ASPIRIN
     Dosage: 100 MG, 1-0-0-0, TABLETS
     Route: 048
  8. METAMIZOLE SODIUM [Concomitant]
     Active Substance: METAMIZOLE SODIUM
     Dosage: 40 GTT, AS NEEDED, DROPS
     Route: 048
  9. BENDAMUSTINE/BENDAMUSTINE HYDROCHLORIDE [Suspect]
     Active Substance: BENDAMUSTINE HYDROCHLORIDE
     Indication: PRODUCT USED FOR UNKNOWN INDICATION
     Dosage: 60 MG / M2, ACCORDING TO SCHEME, INJECTION / INFUSION SOLUTION
     Route: 042
  10. ACICLOVIR [Concomitant]
     Active Substance: ACYCLOVIR
     Dosage: 400 MG, 1-0-1-0, TABLETS
     Route: 048

REACTIONS (9)
  - Vomiting [Unknown]
  - Back pain [Unknown]
  - Abdominal pain [Unknown]
  - Polyuria [Unknown]
  - Polydipsia [Unknown]
  - Plasma cell myeloma [Unknown]
  - Decreased appetite [Unknown]
  - Renal impairment [Unknown]
  - Acute kidney injury [Unknown]
